FAERS Safety Report 8042111-8 (Version None)
Quarter: 2012Q1

REPORT INFORMATION
  Report Type: 
  Country: None (occurrence: None)
  Receive Date: 20120112
  Receipt Date: 20120109
  Transmission Date: 20120608
  Serious: Yes (Hospitalization)
  Sender: FDA-Public Use
  Company Number: US-B.I. PHARMACEUTICALS,INC./RIDGEFIELD-2012-BP-00459BP

PATIENT
  Age: 80 Year
  Sex: Female

DRUGS (6)
  1. WARFARIN SODIUM [Suspect]
     Indication: ATRIAL FIBRILLATION
     Route: 048
  2. PRADAXA [Suspect]
     Route: 048
  3. WARFARIN SODIUM [Suspect]
     Indication: THROMBOSIS
  4. ASPIRIN [Concomitant]
     Indication: THROMBOSIS
  5. PRADAXA [Suspect]
     Indication: ATRIAL FIBRILLATION
     Route: 048
  6. PLAVIX [Concomitant]
     Indication: THROMBOSIS

REACTIONS (5)
  - RIB FRACTURE [None]
  - SKIN DISCOLOURATION [None]
  - FALL [None]
  - TRANSIENT ISCHAEMIC ATTACK [None]
  - ATRIAL THROMBOSIS [None]
